FAERS Safety Report 4886401-6 (Version None)
Quarter: 2006Q1

REPORT INFORMATION
  Report Type: 
  Country: None (occurrence: None)
  Receive Date: 20060120
  Receipt Date: 20051208
  Transmission Date: 20060701
  Serious: Yes (Hospitalization, Disabling, Other)
  Sender: FDA-Public Use
  Company Number: US-MERCK-0512USA01603

PATIENT
  Age: 57 Year
  Sex: Male
  Weight: 75 kg

DRUGS (3)
  1. VIOXX [Suspect]
     Indication: ANALGESIC EFFECT
     Route: 048
     Dates: end: 20020701
  2. MONOPRIL [Concomitant]
     Route: 065
  3. ALKA-SELTZER [Concomitant]
     Route: 065

REACTIONS (5)
  - DEMENTIA [None]
  - DEPRESSION [None]
  - ISCHAEMIC STROKE [None]
  - ROAD TRAFFIC ACCIDENT [None]
  - SYNCOPE [None]
